FAERS Safety Report 6426368-2 (Version None)
Quarter: 2009Q4

REPORT INFORMATION
  Report Type: 
  Country: None (occurrence: None)
  Receive Date: 20091104
  Receipt Date: 20091026
  Transmission Date: 20100525
  Serious: Yes (Hospitalization, Other)
  Sender: FDA-Public Use
  Company Number: US-AMGEN-QUU371285

PATIENT
  Sex: Female

DRUGS (1)
  1. ENBREL [Suspect]
     Indication: RHEUMATOID ARTHRITIS
     Route: 058
     Dates: start: 19980101

REACTIONS (6)
  - EXOSTOSIS [None]
  - FALL [None]
  - HEADACHE [None]
  - INTERVERTEBRAL DISC INJURY [None]
  - NECK PAIN [None]
  - ROAD TRAFFIC ACCIDENT [None]
